FAERS Safety Report 5337320-2 (Version None)
Quarter: 2007Q1

REPORT INFORMATION
  Report Type: 
  Country: None (occurrence: None)
  Receive Date: 20070312
  Receipt Date: 20061206
  Transmission Date: 20070707
  Serious: Yes (Other)
  Sender: FDA-Public Use
  Company Number: 2006-0010789

PATIENT
  Age: 69 Year
  Sex: Male

DRUGS (3)
  1. ATRIPLA [Suspect]
     Indication: HIV INFECTION
     Dosage: 1 DOSAGE FORMS, 1 IN 1 D, ORAL
     Route: 048
     Dates: start: 20061025, end: 20061110
  2. BACTRIM DS [Suspect]
     Indication: PNEUMOCYSTIS JIROVECI PNEUMONIA
     Dosage: 1 IN 1 D, ORAL
     Route: 048
     Dates: start: 20061025
  3. BACTRIM DS [Suspect]
     Indication: PROPHYLAXIS
     Dosage: 1 IN 1 D, ORAL
     Route: 048
     Dates: start: 20061025

REACTIONS (3)
  - NEPHROPATHY TOXIC [None]
  - RENAL FAILURE [None]
  - RENAL TUBULAR DISORDER [None]
